FAERS Safety Report 7004613-2 (Version None)
Quarter: 2010Q3

REPORT INFORMATION
  Report Type: 
  Country: None (occurrence: None)
  Receive Date: 20100921
  Receipt Date: 20100719
  Transmission Date: 20110219
  Serious: Yes (Hospitalization)
  Sender: FDA-Public Use
  Company Number: US-BAYER-200936485NA

PATIENT
  Age: 36 Year
  Sex: Female
  Weight: 81 kg

DRUGS (7)
  1. YASMIN [Suspect]
     Indication: CONTRACEPTION
     Route: 048
     Dates: start: 20070720, end: 20070925
  2. DIFLUCAN [Concomitant]
     Dosage: PO X 1 DOSE
     Route: 048
     Dates: start: 20070725
  3. FLUOXETINE [Concomitant]
     Route: 048
  4. SARAFEM [Concomitant]
     Route: 048
  5. FLUCONAZOLE [Concomitant]
     Dosage: X 3 DAYS
     Route: 048
  6. MULTI-VITAMINS [Concomitant]
  7. EFFEXOR [Concomitant]
     Indication: DEPRESSION

REACTIONS (5)
  - HYPOTENSION [None]
  - PAIN [None]
  - PULMONARY ARTERIAL HYPERTENSION [None]
  - PULMONARY EMBOLISM [None]
  - SYNCOPE [None]
